FAERS Safety Report 16629525 (Version 2)
Quarter: 2019Q3

REPORT INFORMATION
  Report Type: Report from Study
  Country: None (occurrence: US)
  Receive Date: 20190725
  Receipt Date: 20190907
  Transmission Date: 20191004
  Serious: Yes (Hospitalization)
  Sender: FDA-Public Use
  Company Number: US-ABBVIE-19K-163-2866507-00

PATIENT
  Sex: Female

DRUGS (2)
  1. VENCLEXTA [Suspect]
     Active Substance: VENETOCLAX
     Indication: ACUTE MYELOID LEUKAEMIA
     Route: 048
     Dates: start: 20190710, end: 20190719
  2. AZACITIDINE. [Concomitant]
     Active Substance: AZACITIDINE
     Indication: PRODUCT USED FOR UNKNOWN INDICATION

REACTIONS (8)
  - Skin exfoliation [Recovered/Resolved]
  - Oropharyngeal pain [Recovering/Resolving]
  - Dehydration [Recovering/Resolving]
  - Rash [Recovered/Resolved]
  - Platelet count decreased [Recovering/Resolving]
  - Neutrophil count decreased [Recovering/Resolving]
  - White blood cell count decreased [Unknown]
  - Haemoglobin decreased [Recovering/Resolving]

NARRATIVE: CASE EVENT DATE: 2019
